FAERS Safety Report 7226527-5 (Version None)
Quarter: 2011Q1

REPORT INFORMATION
  Report Type: 
  Country: None (occurrence: None)
  Receive Date: 20110114
  Receipt Date: 20110106
  Transmission Date: 20110831
  Serious: Yes (Death)
  Sender: FDA-Public Use
  Company Number: US-CEPHALON-2011000110

PATIENT
  Sex: Male
  Weight: 85 kg

DRUGS (9)
  1. LIDODERM [Concomitant]
  2. OXYCODONE HCL AND ACETAMINOPHEN [Concomitant]
  3. METOPROLOL SUCCINATE [Concomitant]
  4. PROVIGIL [Suspect]
     Route: 048
     Dates: start: 20100101
  5. LEXAPRO [Concomitant]
  6. ADVAIR [Concomitant]
  7. EXELON [Concomitant]
  8. LISINOPRIL [Concomitant]
  9. APLISOL [Concomitant]

REACTIONS (2)
  - PRE-EXISTING DISEASE [None]
  - DEATH [None]
